FAERS Safety Report 16455918 (Version 4)
Quarter: 2019Q3

REPORT INFORMATION
  Report Type: Spontaneous
  Country: US (occurrence: US)
  Receive Date: 20190619
  Receipt Date: 20190718
  Transmission Date: 20191004
  Serious: Yes (Hospitalization)
  Sender: FDA-Public Use
  Company Number: US-B.I. PHARMACEUTICALS,INC./RIDGEFIELD-2019-BI-027204

PATIENT
  Age: 89 Year
  Sex: Male
  Weight: 94.44 kg

DRUGS (11)
  1. PRADAXA [Suspect]
     Active Substance: DABIGATRAN ETEXILATE MESYLATE
     Indication: ATRIAL FIBRILLATION
     Dosage: TAKE 150 MG BY MOUTH
     Route: 048
     Dates: start: 20160428, end: 20160625
  2. COREG [Concomitant]
     Active Substance: CARVEDILOL
     Dosage: TAKE 1 TAB BY MOUTH 2 TIMES DAILY  (DOSE DECREASED)
     Route: 048
  3. COREG [Concomitant]
     Active Substance: CARVEDILOL
     Indication: BLOOD PRESSURE MANAGEMENT
     Dosage: TAKE 12.5 MG BY MOUTH 2 TIMES DAILY
     Route: 048
  4. LASIX [Concomitant]
     Active Substance: FUROSEMIDE
     Indication: SWELLING
     Dosage: TAKE 1 TAB BY MOUTH 2 TIMES DAILY  AT MEALTIME (DOSE DECREASED)
     Route: 048
  5. MEXITIL [Concomitant]
     Active Substance: MEXILETINE HYDROCHLORIDE
     Indication: ARRHYTHMIA
     Dosage: TAKE 150 MG BY MOUTH 3 TIMES DAILY
     Route: 048
  6. LASIX [Concomitant]
     Active Substance: FUROSEMIDE
     Indication: BLOOD PRESSURE MEASUREMENT
     Dosage: TAKE 40 MG BY MOUTH ONE TIME DAILY IN MORNING + 20 MG IN PM
     Route: 048
  7. CORDARONE [Concomitant]
     Active Substance: AMIODARONE HYDROCHLORIDE
     Indication: ARRHYTHMIA
     Dosage: TAKE 200 MG BY MOUTH ONE TIME DAILY
     Route: 048
  8. PRINIVIL [Concomitant]
     Active Substance: LISINOPRIL
     Indication: BLOOD PRESSURE MEASUREMENT
     Dosage: TAKE 2.5 MG BY MOUTH ONE TIME DAILY
     Route: 048
  9. LASIX [Concomitant]
     Active Substance: FUROSEMIDE
     Dosage: TAKE 20 MG BY MOUTH ONE TIME DAILY IN EVENING
     Route: 048
  10. SYNTHROID [Concomitant]
     Active Substance: LEVOTHYROXINE SODIUM
     Indication: THYROID DISORDER
     Dosage: TAKE 25 MCG BY MOUTH
     Route: 065
  11. ZESTRIL [Concomitant]
     Active Substance: LISINOPRIL
     Indication: BLOOD PRESSURE MEASUREMENT
     Dosage: TAKE 2.5 MG BY MOUTH ONE TIME DAILY
     Route: 048

REACTIONS (1)
  - Upper gastrointestinal haemorrhage [Unknown]

NARRATIVE: CASE EVENT DATE: 20160625
